FAERS Safety Report 7002644-X (Version None)
Quarter: 2010Q3

REPORT INFORMATION
  Report Type: 
  Country: None (occurrence: None)
  Receive Date: 20100920
  Receipt Date: 20100908
  Transmission Date: 20110219
  Serious: Yes (Hospitalization, Other)
  Sender: FDA-Public Use
  Company Number: JP-PFIZER INC-2010109194

PATIENT
  Age: 73 Year
  Sex: Female
  Weight: 59 kg

DRUGS (14)
  1. LYRICA [Suspect]
     Indication: POST HERPETIC NEURALGIA
     Dosage: 75 MG, 1X/DAY
     Route: 048
     Dates: start: 20100810, end: 20100813
  2. LANSOPRAZOLE [Suspect]
     Indication: ABDOMINAL PAIN UPPER
     Dosage: 15 MG, 1X/DAY
     Route: 048
     Dates: start: 20100806, end: 20100813
  3. LANSOPRAZOLE [Suspect]
     Indication: DECREASED APPETITE
  4. TEGRETOL [Concomitant]
     Indication: POST HERPETIC NEURALGIA
     Dosage: 100 MG, 1X/DAY
     Route: 048
     Dates: start: 20100713, end: 20100813
  5. ATARAX [Concomitant]
     Indication: INSOMNIA
     Dosage: 25 MG, 1X/DAY
     Route: 048
     Dates: start: 20100630, end: 20100813
  6. ETIZOLAM [Concomitant]
     Indication: INSOMNIA
     Dosage: 0.5 MG, 2X/DAY
     Route: 048
     Dates: start: 20100623, end: 20100814
  7. DETRUSITOL [Concomitant]
     Indication: NEUROGENIC BLADDER
     Dosage: 4 MG, 1X/DAY
     Route: 048
     Dates: start: 20100419, end: 20100824
  8. MECOBALAMIN [Concomitant]
     Indication: SPINAL COLUMN STENOSIS
     Dosage: 500 MG, 3X/DAY
     Route: 048
     Dates: start: 20100614, end: 20100814
  9. SHAKUYAKU-KANZO-TO [Concomitant]
     Indication: VARICOSE VEIN
     Dosage: 2.5 G, 3X/DAY
     Route: 048
     Dates: start: 20100527, end: 20100814
  10. MUCOSTA [Concomitant]
     Indication: ABDOMINAL PAIN UPPER
     Dosage: 100 MG, 3X/DAY
     Route: 048
     Dates: start: 20100806, end: 20100813
  11. MUCOSTA [Concomitant]
     Indication: DECREASED APPETITE
  12. LOXOPROFEN [Concomitant]
     Indication: POST HERPETIC NEURALGIA
     Dosage: 60 MG, 3X/DAY
     Route: 048
     Dates: start: 20100618, end: 20100814
  13. RIVOTRIL [Concomitant]
     Indication: POST HERPETIC NEURALGIA
     Dosage: 0.5 MG, 1X/DAY
     Route: 048
     Dates: start: 20100709, end: 20100712
  14. TAKEPRON [Concomitant]
     Dosage: UNK
     Route: 048
     Dates: start: 20100806

REACTIONS (2)
  - ERYTHEMA MULTIFORME [None]
  - LYMPHOCYTE STIMULATION TEST POSITIVE [None]
